FAERS Safety Report 17679549 (Version 1)
Quarter: 2020Q2

REPORT INFORMATION
  Report Type: Spontaneous
  Country: AU (occurrence: AU)
  Receive Date: 20200417
  Receipt Date: 20200417
  Transmission Date: 20200714
  Serious: Yes (Hospitalization, Other)
  Sender: FDA-Public Use
  Company Number: AU-SA-2019SA329966

PATIENT
  Age: 39 Year
  Sex: Female

DRUGS (5)
  1. SOLIRIS [Suspect]
     Active Substance: ECULIZUMAB
     Dosage: 900 MG, QOW
     Route: 042
  2. CLEXANE [Suspect]
     Active Substance: ENOXAPARIN SODIUM
     Indication: BUDD-CHIARI SYNDROME
     Dosage: 100 MG, BID
  3. SOLIRIS [Suspect]
     Active Substance: ECULIZUMAB
     Dosage: 900 MG, QOW
     Route: 042
  4. CLEXANE [Suspect]
     Active Substance: ENOXAPARIN SODIUM
     Dosage: 60 MG, QD
     Route: 058
  5. SOLIRIS [Suspect]
     Active Substance: ECULIZUMAB
     Indication: PAROXYSMAL NOCTURNAL HAEMOGLOBINURIA
     Dosage: 300 MG
     Route: 042
     Dates: start: 201207

REACTIONS (24)
  - Acute kidney injury [Recovered/Resolved]
  - Platelet count decreased [Unknown]
  - Reticulocyte count [Unknown]
  - Nausea [Unknown]
  - Vomiting [Unknown]
  - Injection site haemorrhage [Unknown]
  - Diarrhoea [Unknown]
  - Bladder irritation [Not Recovered/Not Resolved]
  - Blood lactate dehydrogenase increased [Unknown]
  - Abdominal pain upper [Unknown]
  - Blood pressure increased [Unknown]
  - Liver disorder [Unknown]
  - Haematocrit decreased [Unknown]
  - Red blood cell count decreased [Unknown]
  - Abdominal wall haematoma [Unknown]
  - Haematuria [Not Recovered/Not Resolved]
  - Ureteric obstruction [Unknown]
  - Prothrombin time ratio increased [Unknown]
  - Prothrombin time prolonged [Unknown]
  - Injection site bruising [Unknown]
  - Blood loss anaemia [Unknown]
  - Retroperitoneal haematoma [Recovering/Resolving]
  - Haptoglobin decreased [Unknown]
  - Pain [Unknown]

NARRATIVE: CASE EVENT DATE: 20200209
